FAERS Safety Report 5135025-4 (Version None)
Quarter: 2006Q4

REPORT INFORMATION
  Report Type: 
  Country: None (occurrence: None)
  Receive Date: 20061025
  Receipt Date: 20050920
  Transmission Date: 20070319
  Serious: Yes (Other)
  Sender: FDA-Public Use
  Company Number: FR-MERCK-0509FRA00074

PATIENT
  Age: 53 Year
  Sex: Male
  Weight: 63 kg

DRUGS (4)
  1. ZETIA [Suspect]
     Indication: HYPERCHOLESTEROLAEMIA
     Route: 048
     Dates: start: 20050215, end: 20050920
  2. ZETIA [Suspect]
     Route: 048
     Dates: start: 20051201, end: 20060208
  3. ZETIA [Suspect]
     Route: 048
     Dates: start: 20060901
  4. LEVOTHYROXINE SODIUM [Concomitant]
     Indication: HYPOTHYROIDISM
     Route: 048

REACTIONS (3)
  - BLOOD CREATINE PHOSPHOKINASE INCREASED [None]
  - MYALGIA [None]
  - VIRAL INFECTION [None]
